FAERS Safety Report 8565571-2 (Version None)
Quarter: 2012Q3

REPORT INFORMATION
  Report Type: 
  Country: None (occurrence: None)
  Receive Date: 20120724
  Receipt Date: 20120713
  Transmission Date: 20120928
  Serious: Yes (Death, Other)
  Sender: FDA-Public Use
  Company Number: GER/GER/12/0025051

PATIENT
  Age: 0 Year
  Sex: Female

DRUGS (1)
  1. FLUOXETINE HCL [Suspect]
     Indication: ANXIETY DISORDER
     Dosage: 30 MG, 1 IN 1 D, TRANSPLACENTEL, 20 MG, 1 IN 1 D
     Route: 064

REACTIONS (2)
  - FOETAL DEATH [None]
  - MATERNAL DRUGS AFFECTING FOETUS [None]
